FAERS Safety Report 24408126 (Version 3)
Quarter: 2024Q4

REPORT INFORMATION
  Report Type: Spontaneous
  Country: US (occurrence: US)
  Receive Date: 20241007
  Receipt Date: 20241209
  Transmission Date: 20250114
  Serious: No
  Sender: PFIZER
  Company Number: US-PFIZER INC-202400211208

PATIENT
  Age: 20 Year
  Sex: Female

DRUGS (1)
  1. CIBINQO [Suspect]
     Active Substance: ABROCITINIB
     Indication: Dermatitis atopic
     Dosage: 100 MG, DAILY
     Dates: start: 20240708

REACTIONS (4)
  - Nasopharyngitis [Unknown]
  - Dysphonia [Unknown]
  - Scratch [Unknown]
  - Insomnia [Unknown]
